FAERS Safety Report 7457735-6 (Version None)
Quarter: 2011Q2

REPORT INFORMATION
  Report Type: 
  Country: None (occurrence: None)
  Receive Date: 20110504
  Receipt Date: 20110429
  Transmission Date: 20111010
  Serious: Yes (Death)
  Sender: FDA-Public Use
  Company Number: DE-ROCHE-774403

PATIENT
  Sex: Female
  Weight: 49 kg

DRUGS (3)
  1. BEVACIZUMAB [Suspect]
     Dosage: ROUTE: INJECTION, DOSE:15
     Route: 065
     Dates: start: 20110117, end: 20110208
  2. PACLITAXEL [Concomitant]
     Dates: start: 20110118, end: 20110208
  3. CARBOPLATIN [Concomitant]
     Dates: start: 20110118, end: 20110208

REACTIONS (2)
  - NO THERAPEUTIC RESPONSE [None]
  - NEOPLASM MALIGNANT [None]
